FAERS Safety Report 25838100 (Version 1)
Quarter: 2025Q3

REPORT INFORMATION
  Report Type: Spontaneous
  Country: US (occurrence: US)
  Receive Date: 20250923
  Receipt Date: 20250923
  Transmission Date: 20251020
  Serious: No
  Sender: ANI
  Company Number: US-ANIPHARMA-2025-US-027647

PATIENT
  Age: 60 Year
  Sex: Male
  Weight: 169.19 kg

DRUGS (9)
  1. PRILOSEC [Concomitant]
     Active Substance: OMEPRAZOLE MAGNESIUM
  2. METOPROLOL [Concomitant]
     Active Substance: METOPROLOL
  3. ENALAPRIL [Concomitant]
     Active Substance: ENALAPRIL
  4. ASPIRIN [Concomitant]
     Active Substance: ASPIRIN
  5. HYDROCODONE [Concomitant]
     Active Substance: HYDROCODONE
  6. TIZANIDINE [Concomitant]
     Active Substance: TIZANIDINE
  7. R U-500 insulin [Concomitant]
  8. ATORVASTATIN [Concomitant]
     Active Substance: ATORVASTATIN
  9. CORTICOTROPIN [Suspect]
     Active Substance: CORTICOTROPIN
     Indication: Gout
     Route: 058
     Dates: start: 20250521

REACTIONS (9)
  - Injection site induration [Not Recovered/Not Resolved]
  - Peripheral swelling [Not Recovered/Not Resolved]
  - Injection site swelling [Unknown]
  - Pain [Unknown]
  - Constipation [Recovering/Resolving]
  - Weight increased [Unknown]
  - Injection site pain [Unknown]
  - Gait disturbance [Not Recovered/Not Resolved]
  - Contraindicated product administered [Unknown]

NARRATIVE: CASE EVENT DATE: 20250527
